FAERS Safety Report 16213265 (Version 4)
Quarter: 2019Q2

REPORT INFORMATION
  Report Type: Spontaneous
  Country: FR (occurrence: FR)
  Receive Date: 20190418
  Receipt Date: 20190515
  Transmission Date: 20190711
  Serious: Yes (Death, Other)
  Sender: FDA-Public Use
  Company Number: FR-009507513-1904FRA000831

PATIENT
  Sex: Female
  Weight: 63 kg

DRUGS (1)
  1. GONADOTROPHINE CHORIONIQUE ENDO 1500 UI/1ML [Suspect]
     Active Substance: GONADOTROPHIN, CHORIONIC
     Dosage: UNK

REACTIONS (2)
  - Septic shock [Fatal]
  - Off label use [Unknown]
